FAERS Safety Report 20297063 (Version 1)
Quarter: 2022Q1

REPORT INFORMATION
  Report Type: Spontaneous
  Country: FR (occurrence: FR)
  Receive Date: 20220105
  Receipt Date: 20220105
  Transmission Date: 20220423
  Serious: Yes (Hospitalization)
  Sender: FDA-Public Use
  Company Number: None

PATIENT
  Age: 77 Year
  Sex: Female

DRUGS (3)
  1. LEVOFLOXACIN [Suspect]
     Active Substance: LEVOFLOXACIN
     Indication: Arthritis infective
     Dosage: 1GRAM
     Route: 048
     Dates: start: 20210511, end: 20210527
  2. RIFAMPIN [Suspect]
     Active Substance: RIFAMPIN
     Indication: Arthritis infective
     Dosage: 20MG/KG
     Route: 048
     Dates: start: 20210511, end: 20210527
  3. LOVENOX [Suspect]
     Active Substance: ENOXAPARIN SODIUM
     Indication: Thrombosis prophylaxis
     Dosage: 4000 IU (INTERNATIONAL UNIT) DAILY; 1 TIME PER DAY,LOVENOX 4000 IU ANTI-XA / 0.4 ML, SOLUTION FOR IN
     Route: 058
     Dates: start: 202104

REACTIONS (2)
  - Purpura non-thrombocytopenic [Recovered/Resolved]
  - Tubulointerstitial nephritis [Recovered/Resolved]

NARRATIVE: CASE EVENT DATE: 20210526
